FAERS Safety Report 4603382-0 (Version None)
Quarter: 2005Q1

REPORT INFORMATION
  Report Type: 
  Country: None (occurrence: None)
  Receive Date: 20050308
  Receipt Date: 20050302
  Transmission Date: 20050727
  Serious: Yes (Death, Hospitalization)
  Sender: FDA-Public Use
  Company Number: GBWYE470802MAR05

PATIENT
  Sex: Female

DRUGS (1)
  1. EFFEXOR XR [Suspect]
     Dosage: 150 MG 1X PER 1 DAY
     Route: 048
     Dates: start: 20040101

REACTIONS (5)
  - CEREBRAL HAEMORRHAGE [None]
  - CONVULSION [None]
  - FALL [None]
  - INTENTIONAL MISUSE [None]
  - SUICIDE ATTEMPT [None]
